FAERS Safety Report 14334480 (Version 2)
Quarter: 2018Q1

REPORT INFORMATION
  Report Type: Spontaneous
  Country: IT (occurrence: IT)
  Receive Date: 20171228
  Receipt Date: 20180207
  Transmission Date: 20180509
  Serious: Yes (Other)
  Sender: FDA-Public Use
  Company Number: IT-BIOGEN-2017BI00499981

PATIENT
  Age: 28 Year
  Sex: Female
  Weight: 150 kg

DRUGS (1)
  1. TECFIDERA [Suspect]
     Active Substance: DIMETHYL FUMARATE
     Indication: MULTIPLE SCLEROSIS
     Route: 048
     Dates: start: 20170130

REACTIONS (2)
  - Maternal exposure during pregnancy [Unknown]
  - Pregnancy test positive [Not Recovered/Not Resolved]

NARRATIVE: CASE EVENT DATE: 20171213
